FAERS Safety Report 9054390 (Version 1)
Quarter: 2013Q1

REPORT INFORMATION
  Report Type: Spontaneous
  Country: US (occurrence: US)
  Receive Date: 20130208
  Receipt Date: 20130208
  Transmission Date: 20140127
  Serious: No
  Sender: FDA-Public Use
  Company Number: US-GLAXOSMITHKLINE-A0977933A

PATIENT
  Age: 50 Year
  Sex: Female

DRUGS (2)
  1. PAXIL CR [Suspect]
     Indication: PANIC DISORDER
     Dosage: 37.5MG PER DAY
     Route: 048
     Dates: start: 201203
  2. NO CONCURRENT MEDICATIONS [Concomitant]

REACTIONS (3)
  - Abdominal discomfort [Unknown]
  - Anxiety [Unknown]
  - Panic attack [Unknown]
